FAERS Safety Report 21237949 (Version 2)
Quarter: 2023Q1

REPORT INFORMATION
  Report Type: Spontaneous
  Country: DE (occurrence: DE)
  Receive Date: 20220822
  Receipt Date: 20230104
  Transmission Date: 20230418
  Serious: Yes (Other)
  Sender: FDA-Public Use
  Company Number: DE-SANOFI-01236201

PATIENT
  Age: 41 Year
  Sex: Male

DRUGS (1)
  1. DUPIXENT [Suspect]
     Active Substance: DUPILUMAB
     Indication: Chronic rhinosinusitis with nasal polyps
     Dosage: 300 MG QOW
     Route: 058
     Dates: start: 20210917, end: 20220802

REACTIONS (2)
  - Myeloid leukaemia [Unknown]
  - Follicular lymphoma [Unknown]

NARRATIVE: CASE EVENT DATE: 20220906
